FAERS Safety Report 25460500 (Version 1)
Quarter: 2025Q2

REPORT INFORMATION
  Report Type: Spontaneous
  Country: US (occurrence: US)
  Receive Date: 20250620
  Receipt Date: 20250620
  Transmission Date: 20250717
  Serious: No
  Sender: ROCHE
  Company Number: US-ROCHE-10000313897

PATIENT
  Sex: Female

DRUGS (1)
  1. COTELLIC [Suspect]
     Active Substance: COBIMETINIB FUMARATE
     Indication: Langerhans^ cell histiocytosis
     Route: 048
     Dates: start: 202505

REACTIONS (5)
  - Pruritus [Unknown]
  - Joint stiffness [Unknown]
  - Peripheral swelling [Unknown]
  - Joint swelling [Unknown]
  - Visual impairment [Unknown]
